FAERS Safety Report 6873683 (Version 16)
Quarter: 2013Q4

REPORT INFORMATION
  Report Type: Spontaneous
  Country: US (occurrence: US)
  Receive Date: 20090106
  Receipt Date: 20131205
  Transmission Date: 20140711
  Serious: Yes (Death, Hospitalization, Other)
  Sender: FDA-Public Use
  Company Number: PHEH2008US11470

PATIENT
  Age: 59 Year
  Sex: Male
  Weight: 68.27 kg

DRUGS (32)
  1. AREDIA [Suspect]
     Dates: start: 19970605, end: 2003
  2. AREDIA [Suspect]
     Dates: start: 2005, end: 200605
  3. ZOMETA [Suspect]
     Dates: start: 20020403, end: 2005
  4. REVLIMID [Concomitant]
     Dosage: 25 MG, QD
  5. DECADRON                                /CAN/ [Concomitant]
     Route: 048
  6. PERIOSTAT [Concomitant]
  7. KEFLEX                                  /UNK/ [Concomitant]
  8. VICODIN [Concomitant]
  9. DOXYCYCLINE [Concomitant]
  10. CORTICOSTEROID NOS [Concomitant]
  11. AUGMENTIN                               /SCH/ [Concomitant]
  12. CEFTIN [Concomitant]
  13. PEN-VEE-K [Concomitant]
     Route: 048
  14. FLAGYL [Concomitant]
     Dosage: 500 MG, QID
     Route: 048
  15. FLOMAX ^BOEHRINGER INGELHEIM^ [Concomitant]
  16. AVODART [Concomitant]
  17. PENICILLIN ^GRUNENTHAL^ [Concomitant]
  18. CIPRO ^MILES^ [Concomitant]
  19. BACID [Concomitant]
  20. MACRODANTIN [Concomitant]
  21. CHEMOTHERAPEUTICS NOS [Concomitant]
  22. Z-PAK [Concomitant]
     Route: 048
  23. ASTELIN [Concomitant]
     Route: 048
  24. BENADRYL ^ACHE^ [Concomitant]
     Route: 048
  25. INDERAL ^IMPERIAL CHEMICAL INDUSTRIES^ [Concomitant]
     Route: 048
  26. TOPROL XL [Concomitant]
     Route: 048
  27. ZOCOR ^DIECKMANN^ [Concomitant]
     Route: 048
  28. ASPIRIN ^BAYER^ [Concomitant]
     Route: 048
  29. FOLIC ACID [Concomitant]
     Route: 048
  30. DOXIL [Concomitant]
  31. KYTRIL [Concomitant]
  32. VINCRISTINE [Concomitant]

REACTIONS (92)
  - Death [Fatal]
  - Osteonecrosis of jaw [Unknown]
  - Osteomyelitis [Unknown]
  - Post procedural infection [Unknown]
  - Swelling face [Unknown]
  - Pain in jaw [Unknown]
  - Pain [Unknown]
  - Injury [Unknown]
  - Bone disorder [Unknown]
  - Oral disorder [Unknown]
  - Periodontitis [Unknown]
  - Gingival bleeding [Unknown]
  - Gingival swelling [Unknown]
  - Gingival erythema [Unknown]
  - Gingival ulceration [Unknown]
  - Gingival recession [Unknown]
  - Toothache [Unknown]
  - Tooth deposit [Unknown]
  - Tooth loss [Unknown]
  - Tooth abscess [Unknown]
  - Purulent discharge [Unknown]
  - Oral cavity fistula [Unknown]
  - Sinusitis [Unknown]
  - Headache [Unknown]
  - Pyrexia [Unknown]
  - Body dysmorphic disorder [Unknown]
  - Emotional distress [Unknown]
  - Anxiety [Unknown]
  - Weight decreased [Unknown]
  - Physical disability [Unknown]
  - Denture wearer [Unknown]
  - Hypoaesthesia oral [Unknown]
  - Leukaemia [Unknown]
  - Inflammation [Unknown]
  - Bone loss [Unknown]
  - Osteopenia [Unknown]
  - Pneumonia [Unknown]
  - Atelectasis [Unknown]
  - Pleural effusion [Unknown]
  - Diarrhoea [Unknown]
  - Urinary retention [Unknown]
  - Urosepsis [Unknown]
  - Abscess [Unknown]
  - Cyst [Unknown]
  - Diverticulum [Unknown]
  - Polyp [Unknown]
  - Haemorrhoids [Unknown]
  - Prostatomegaly [Unknown]
  - Bladder disorder [Unknown]
  - Urethral stenosis [Unknown]
  - Cough [Unknown]
  - Chest pain [Unknown]
  - Eczema [Unknown]
  - Rash erythematous [Unknown]
  - Pruritus [Unknown]
  - Anaemia [Unknown]
  - Fatigue [Unknown]
  - Ear pain [Unknown]
  - Tinnitus [Unknown]
  - Inguinal hernia [Unknown]
  - Abdominal pain [Unknown]
  - Insomnia [Unknown]
  - Dysuria [Unknown]
  - Haematuria [Unknown]
  - Lung adenocarcinoma stage IV [Unknown]
  - Spinal compression fracture [Unknown]
  - Lung consolidation [Unknown]
  - Second primary malignancy [Unknown]
  - Metastases to bone [Unknown]
  - Squamous cell carcinoma [Unknown]
  - Primary sequestrum [Unknown]
  - Hiatus hernia [Unknown]
  - Neuropathy peripheral [Unknown]
  - Rib fracture [Unknown]
  - Scoliosis [Unknown]
  - Hepatic cyst [Unknown]
  - Bronchiectasis [Unknown]
  - Urinary tract infection [Unknown]
  - Fall [Unknown]
  - Depression [Unknown]
  - Hallucination [Unknown]
  - Vision blurred [Unknown]
  - Dysgeusia [Unknown]
  - Benign prostatic hyperplasia [Unknown]
  - Restlessness [Unknown]
  - Memory impairment [Unknown]
  - Confusional state [Unknown]
  - Decreased appetite [Unknown]
  - Dyspnoea [Unknown]
  - Dysphagia [Unknown]
  - Sinus congestion [Unknown]
  - Musculoskeletal discomfort [Unknown]
